FAERS Safety Report 9063964 (Version 4)
Quarter: 2014Q2

REPORT INFORMATION
  Report Type: Report from Study
  Country: GB (occurrence: GB)
  Receive Date: 20130213
  Receipt Date: 20140509
  Transmission Date: 20141212
  Serious: Yes (Hospitalization)
  Sender: FDA-Public Use
  Company Number: GB-ROCHE-1146972

PATIENT
  Age: 67 Year
  Sex: Female
  Weight: 105.2 kg

DRUGS (7)
  1. TRASTUZUMAB EMTANSINE [Suspect]
     Indication: BREAST CANCER
     Dosage: LAST DOSE RECEIVED PRIOR TO AE ON 05/OCT/2012, 22MG
     Route: 042
     Dates: start: 20110708
  2. ATENOLOL [Concomitant]
     Indication: HYPERTENSION
     Route: 065
     Dates: start: 20110906
  3. LORAZEPAM [Concomitant]
     Indication: ANXIETY
     Route: 065
     Dates: start: 201107, end: 201107
  4. CLOBETASONE [Concomitant]
     Indication: RASH
     Route: 065
     Dates: start: 20120316
  5. CLEXANE [Concomitant]
     Route: 065
     Dates: start: 20121019, end: 20121021
  6. CHLORHEXIDINE [Concomitant]
     Route: 065
     Dates: start: 20121019, end: 20121022
  7. PLACEBO [Suspect]
     Indication: BREAST CANCER
     Dosage: LAST DOSE PRIOR TO AE ON 05/OCT/2012, INFUSION INTERRUPTED
     Route: 042
     Dates: start: 20110708

REACTIONS (1)
  - Cellulitis [Recovered/Resolved]
